FAERS Safety Report 6930382-8 (Version None)
Quarter: 2010Q3

REPORT INFORMATION
  Report Type: 
  Country: None (occurrence: None)
  Receive Date: 20100818
  Receipt Date: 20100813
  Transmission Date: 20110219
  Serious: Yes (Life-Threatening, Hospitalization)
  Sender: FDA-Public Use
  Company Number: RU-ROCHE-721210

PATIENT
  Sex: Female

DRUGS (4)
  1. TRASTUZUMAB [Suspect]
     Indication: BREAST CANCER
     Dosage: LOADING DOSE
     Route: 042
  2. TRASTUZUMAB [Suspect]
     Route: 042
  3. LAPATINIB [Suspect]
     Indication: BREAST CANCER
     Route: 048
  4. DOXORUBICIN HCL [Concomitant]
     Indication: BREAST CANCER
     Route: 042
     Dates: start: 20091105, end: 20100304

REACTIONS (1)
  - MYOCARDIAL INFARCTION [None]
